FAERS Safety Report 14342244 (Version 1)
Quarter: 2018Q1

REPORT INFORMATION
  Report Type: Spontaneous
  Country: US (occurrence: US)
  Receive Date: 20180102
  Receipt Date: 20180102
  Transmission Date: 20180509
  Serious: No
  Sender: FDA-Public Use
  Company Number: US-TEVA-2017-US-827662

PATIENT
  Age: 73 Year
  Sex: Male

DRUGS (1)
  1. DULOXETINE. [Suspect]
     Active Substance: DULOXETINE
     Indication: ARTHRITIS
     Dosage: 60 MILLIGRAM DAILY;
     Route: 048

REACTIONS (7)
  - Musculoskeletal stiffness [Unknown]
  - Pain [Unknown]
  - Arthralgia [Unknown]
  - Joint stiffness [Unknown]
  - Drug ineffective [Unknown]
  - Therapy change [Unknown]
  - Neck pain [Unknown]

NARRATIVE: CASE EVENT DATE: 201711
